APPROVED DRUG PRODUCT: DANTRIUM
Active Ingredient: DANTROLENE SODIUM
Strength: 20MG/VIAL
Dosage Form/Route: INJECTABLE;INJECTION
Application: N018264 | Product #001 | TE Code: AP
Applicant: PH HEALTH LTD
Approved: Approved Prior to Jan 1, 1982 | RLD: Yes | RS: Yes | Type: RX